FAERS Safety Report 15789098 (Version 1)
Quarter: 2019Q1

REPORT INFORMATION
  Report Type: Spontaneous
  Country: US (occurrence: US)
  Receive Date: 20190104
  Receipt Date: 20190104
  Transmission Date: 20190417
  Serious: No
  Sender: FDA-Public Use
  Company Number: US-PFIZER INC-2019003634

PATIENT
  Age: 28 Year
  Sex: Female

DRUGS (2)
  1. SOMAVERT [Suspect]
     Active Substance: PEGVISOMANT
     Indication: ACROMEGALY
     Dosage: UNK, DAILY
  2. SOMAVERT [Suspect]
     Active Substance: PEGVISOMANT
     Dosage: 20 MG, ALTERNATE DAY
     Route: 058
     Dates: start: 201801

REACTIONS (5)
  - Fatigue [Recovering/Resolving]
  - Neck pain [Recovering/Resolving]
  - Product dose omission [Unknown]
  - Product use issue [Unknown]
  - Headache [Recovering/Resolving]

NARRATIVE: CASE EVENT DATE: 201801
